FAERS Safety Report 26135382 (Version 1)
Quarter: 2025Q4

REPORT INFORMATION
  Report Type: Spontaneous
  Country: US (occurrence: US)
  Receive Date: 20251209
  Receipt Date: 20251209
  Transmission Date: 20260118
  Serious: No
  Sender: NOVEN
  Company Number: US-NOVEN PHARMACEUTICALS, INC.-2025-NOV-US001283

PATIENT
  Sex: Female

DRUGS (3)
  1. ESTRADIOL [Suspect]
     Active Substance: ESTRADIOL
     Indication: Night sweats
     Dosage: UNKNOWN, UNK
     Route: 062
     Dates: start: 202408
  2. ESTRADIOL [Suspect]
     Active Substance: ESTRADIOL
     Indication: Hot flush
  3. ESTRADIOL [Suspect]
     Active Substance: ESTRADIOL
     Indication: Asthenia

REACTIONS (1)
  - Therapeutic product effect incomplete [Unknown]
